FAERS Safety Report 7385839-5 (Version None)
Quarter: 2011Q1

REPORT INFORMATION
  Report Type: 
  Country: None (occurrence: None)
  Receive Date: 20110331
  Receipt Date: 20110328
  Transmission Date: 20110831
  Serious: No
  Sender: FDA-Public Use
  Company Number: US-PFIZER INC-2011033157

PATIENT
  Sex: Male

DRUGS (3)
  1. GEODON [Suspect]
     Dosage: 20 MG, 1X/DAY
     Route: 048
  2. PAXIL [Concomitant]
     Dosage: 40 MG, UNK
  3. GEODON [Suspect]
     Dosage: 40 MG, 1X/DAY
     Route: 048
     Dates: start: 20110303, end: 20110307

REACTIONS (1)
  - TACHYCARDIA [None]
